FAERS Safety Report 5404657-8 (Version None)
Quarter: 2007Q3

REPORT INFORMATION
  Report Type: 
  Country: None (occurrence: None)
  Receive Date: 20070731
  Receipt Date: 20070720
  Transmission Date: 20080115
  Serious: No
  Sender: FDA-Public Use
  Company Number: 2007-161635-NL

PATIENT
  Age: 22 Year
  Sex: Female

DRUGS (1)
  1. ETONOGESTREL (BATCH #: 817740/887284) [Suspect]
     Indication: CONTRACEPTION
     Dosage: DF
     Route: 059
     Dates: start: 20060806, end: 20070720

REACTIONS (2)
  - INTRACRANIAL PRESSURE INCREASED [None]
  - NEUROLOGICAL COMPLICATION FROM DEVICE [None]
